FAERS Safety Report 15457970 (Version 2)
Quarter: 2018Q4

REPORT INFORMATION
  Report Type: Report from Study
  Country: NL (occurrence: NL)
  Receive Date: 20181003
  Receipt Date: 20181031
  Transmission Date: 20190204
  Serious: Yes (Death)
  Sender: FDA-Public Use
  Company Number: NL-TOLMAR, INC.-2018NL009665

PATIENT

DRUGS (14)
  1. ELIGARD [Suspect]
     Active Substance: LEUPROLIDE ACETATE
     Dosage: 45 MG, EVERY 6 MONTHS
     Route: 058
     Dates: start: 20171023
  2. BISOPROLOL [Concomitant]
     Active Substance: BISOPROLOL
  3. FUROSEMIDE. [Concomitant]
     Active Substance: FUROSEMIDE
  4. METOCLOPRAMIDE. [Concomitant]
     Active Substance: METOCLOPRAMIDE
  5. EDOXABAN [Concomitant]
     Active Substance: EDOXABAN TOSYLATE
  6. PREDNISOLON                        /00016201/ [Concomitant]
     Active Substance: PREDNISOLONE
  7. VESOMNI [Concomitant]
     Active Substance: SOLIFENACIN\TAMSULOSIN
  8. CYRESS [Concomitant]
     Active Substance: BARNIDIPINE HYDROCHLORIDE
  9. ELIGARD [Suspect]
     Active Substance: LEUPROLIDE ACETATE
     Dosage: 45 MG, EVERY 6 MONTHS
     Route: 058
     Dates: start: 20180428
  10. OXYNORM [Concomitant]
     Active Substance: OXYCODONE HYDROCHLORIDE
  11. FENTANYL SANDOZ [Concomitant]
     Active Substance: FENTANYL
  12. ELIGARD [Suspect]
     Active Substance: LEUPROLIDE ACETATE
     Indication: PROSTATE CANCER
     Dosage: 45 MG, EVERY 6 MONTHS
     Route: 058
     Dates: start: 20150421
  13. ATORVASTATIN                       /01326102/ [Concomitant]
     Active Substance: ATORVASTATIN
  14. OMEPRAZOL                          /00661201/ [Concomitant]
     Active Substance: OMEPRAZOLE

REACTIONS (1)
  - Prostate cancer [Fatal]
